FAERS Safety Report 5916168-1 (Version None)
Quarter: 2008Q4

REPORT INFORMATION
  Report Type: 
  Country: None (occurrence: None)
  Receive Date: 20081009
  Receipt Date: 20080924
  Transmission Date: 20090506
  Serious: Yes (Hospitalization)
  Sender: FDA-Public Use
  Company Number: 034314

PATIENT
  Age: 77 Year
  Sex: Male

DRUGS (3)
  1. ANAGRELIDE HCL [Suspect]
     Indication: PLATELET DISORDER
     Dates: start: 20070301, end: 20080101
  2. IRON (IRON) [Concomitant]
  3. LASIX [Concomitant]

REACTIONS (6)
  - DIARRHOEA [None]
  - DYSPNOEA [None]
  - FATIGUE [None]
  - OEDEMA PERIPHERAL [None]
  - PULMONARY OEDEMA [None]
  - SWELLING FACE [None]
